FAERS Safety Report 7771408-1 (Version None)
Quarter: 2011Q3

REPORT INFORMATION
  Report Type: 
  Country: None (occurrence: None)
  Receive Date: 20110922
  Receipt Date: 20110720
  Transmission Date: 20111222
  Serious: Yes (Other)
  Sender: FDA-Public Use
  Company Number: US-ASTRAZENECA-2008UW26982

PATIENT
  Age: 47 Year
  Sex: Female
  Weight: 59 kg

DRUGS (10)
  1. SEROQUEL [Suspect]
     Route: 048
     Dates: start: 20050825
  2. ZYPREXA [Concomitant]
     Dates: start: 20060101
  3. ZYPREXA [Concomitant]
     Dates: start: 20050601
  4. CYMBALTA [Concomitant]
     Dates: start: 20050601
  5. SEROQUEL [Suspect]
     Route: 048
     Dates: start: 20051201, end: 20070801
  6. SEPTRA [Concomitant]
     Dates: start: 20050801
  7. KLONAPIN [Concomitant]
     Dates: start: 20050609
  8. TRAZODONE HYDROCHLORIDE [Concomitant]
     Dates: start: 20070823, end: 20070827
  9. SEROQUEL [Suspect]
     Indication: SLEEP DISORDER
     Dosage: 25 MG TO 100 MG
     Route: 048
     Dates: start: 20050825
  10. RISPERDAL [Concomitant]
     Dates: start: 20070823, end: 20070831

REACTIONS (7)
  - OBESITY [None]
  - JOINT INJURY [None]
  - DIABETIC COMA [None]
  - HYPERTENSION [None]
  - TYPE 2 DIABETES MELLITUS [None]
  - DRUG WITHDRAWAL SYNDROME [None]
  - RHABDOMYOLYSIS [None]
